FAERS Safety Report 24355177 (Version 2)
Quarter: 2025Q2

REPORT INFORMATION
  Report Type: Spontaneous
  Country: US (occurrence: US)
  Receive Date: 20240924
  Receipt Date: 20250401
  Transmission Date: 20250717
  Serious: Yes (Other)
  Sender: AMNEAL
  Company Number: US-AMNEAL PHARMACEUTICALS-2024-AMRX-03472

PATIENT
  Age: 70 Year
  Sex: Male

DRUGS (8)
  1. ONGENTYS [Suspect]
     Active Substance: OPICAPONE
     Indication: Parkinson^s disease
     Route: 065
  2. ONGENTYS [Suspect]
     Active Substance: OPICAPONE
     Indication: Peripheral sensory neuropathy
  3. RYTARY [Suspect]
     Active Substance: CARBIDOPA\LEVODOPA
     Indication: Parkinson^s disease
     Dosage: 3 DOSAGE FORM, 5 /DAY
     Route: 065
  4. RYTARY [Suspect]
     Active Substance: CARBIDOPA\LEVODOPA
     Indication: Peripheral sensory neuropathy
  5. OCTAGAM IMMUNE GLOBULIN (HUMAN) [Suspect]
     Active Substance: HUMAN IMMUNOGLOBULIN G
     Indication: Peripheral sensory neuropathy
     Route: 065
     Dates: start: 2023
  6. OCTAGAM IMMUNE GLOBULIN (HUMAN) [Suspect]
     Active Substance: HUMAN IMMUNOGLOBULIN G
     Indication: Parkinson^s disease
  7. INBRIJA [Suspect]
     Active Substance: LEVODOPA
     Indication: Parkinson^s disease
  8. INBRIJA [Suspect]
     Active Substance: LEVODOPA
     Indication: Peripheral sensory neuropathy

REACTIONS (5)
  - Parkinson^s disease [Unknown]
  - Limb immobilisation [Unknown]
  - Body height decreased [Unknown]
  - Drug interaction [Unknown]
  - Product use in unapproved indication [Unknown]
